FAERS Safety Report 16028941 (Version 1)
Quarter: 2019Q1

REPORT INFORMATION
  Report Type: Spontaneous
  Country: US (occurrence: US)
  Receive Date: 20190304
  Receipt Date: 20190304
  Transmission Date: 20190418
  Serious: No
  Sender: FDA-Public Use
  Company Number: US-IMPAX LABORATORIES, LLC-2018-IPXL-01248

PATIENT
  Age: 81 Year
  Sex: Male
  Weight: 77 kg

DRUGS (8)
  1. RYTARY [Suspect]
     Active Substance: CARBIDOPA\LEVODOPA
     Dosage: 36.25/145MG, 6 CAPSULE, UNK
     Route: 065
     Dates: start: 2018, end: 201806
  2. XANAX [Concomitant]
     Active Substance: ALPRAZOLAM
     Indication: PRODUCT USED FOR UNKNOWN INDICATION
     Dosage: 11.25 MG, DAILY
     Route: 065
  3. RYTARY [Suspect]
     Active Substance: CARBIDOPA\LEVODOPA
     Indication: PARKINSON^S DISEASE
     Dosage: 36.25/145MG, 4 CAPSULES, UNK
     Route: 065
     Dates: start: 20180407, end: 2018
  4. RYTARY [Suspect]
     Active Substance: CARBIDOPA\LEVODOPA
     Dosage: 36.25/145MG, 5 CAPSULES, UNK
     Route: 065
     Dates: start: 2018, end: 2018
  5. ROPINIROLE. [Concomitant]
     Active Substance: ROPINIROLE
     Indication: PRODUCT USED FOR UNKNOWN INDICATION
     Dosage: 5 MG, 2 PILLS, THREE TIMES DAILY
     Route: 065
  6. ROPINIROLE. [Concomitant]
     Active Substance: ROPINIROLE
     Dosage: UNK, SLOWING GOING OFF
     Route: 065
  7. TYLENOL [Concomitant]
     Active Substance: ACETAMINOPHEN
     Indication: PRODUCT USED FOR UNKNOWN INDICATION
     Dosage: 500 MG, 5 /DAY AND AS NEEDED
     Route: 065
  8. XANAX [Concomitant]
     Active Substance: ALPRAZOLAM
     Dosage: PILLS STOPPING, 1 /WEEK, UNK
     Route: 065

REACTIONS (9)
  - Crying [Unknown]
  - Logorrhoea [Unknown]
  - Libido increased [Unknown]
  - Paraesthesia [Recovering/Resolving]
  - Bedridden [Unknown]
  - Gait disturbance [Recovering/Resolving]
  - Tremor [Not Recovered/Not Resolved]
  - Therapeutic response shortened [Unknown]
  - Adverse event [Unknown]

NARRATIVE: CASE EVENT DATE: 2018
